FAERS Safety Report 7746334-4 (Version None)
Quarter: 2011Q3

REPORT INFORMATION
  Report Type: 
  Country: None (occurrence: None)
  Receive Date: 20110912
  Receipt Date: 20110912
  Transmission Date: 20111222
  Serious: Yes (Other)
  Sender: FDA-Public Use
  Company Number: None

PATIENT
  Sex: Female

DRUGS (1)
  1. ENBREL [Suspect]
     Indication: MULTIPLE SCLEROSIS
     Dosage: 50 MG QW SQ
     Route: 058
     Dates: start: 20101101, end: 20110801

REACTIONS (1)
  - ALOPECIA [None]
